FAERS Safety Report 12936446 (Version 3)
Quarter: 2016Q4

REPORT INFORMATION
  Report Type: Spontaneous
  Country: US (occurrence: US)
  Receive Date: 20161114
  Receipt Date: 20161222
  Transmission Date: 20170207
  Serious: Yes (Hospitalization, Other)
  Sender: FDA-Public Use
  Company Number: US-ASTRAZENECA-2016SF12408

PATIENT
  Age: 48 Year
  Sex: Female
  Weight: 68 kg

DRUGS (31)
  1. VOLTAREN [Concomitant]
     Active Substance: DICLOFENAC SODIUM
     Route: 061
  2. VALIUM [Concomitant]
     Active Substance: DIAZEPAM
     Indication: ANXIETY
     Route: 048
     Dates: start: 2016
  3. MOVANTIK [Suspect]
     Active Substance: NALOXEGOL OXALATE
     Route: 048
     Dates: start: 2012
  4. XANAX XR [Suspect]
     Active Substance: ALPRAZOLAM
     Indication: SUICIDAL IDEATION
     Route: 048
     Dates: start: 2006
  5. XANAX XR [Suspect]
     Active Substance: ALPRAZOLAM
     Indication: DEPRESSION
     Route: 048
     Dates: start: 201409
  6. LYRICA [Suspect]
     Active Substance: PREGABALIN
     Indication: PAIN
     Route: 065
     Dates: start: 2008
  7. METHADONE [Concomitant]
     Active Substance: METHADONE HYDROCHLORIDE
     Dosage: 10.0MG UNKNOWN
     Route: 048
  8. AMMONIUM LACTATE. [Concomitant]
     Active Substance: AMMONIUM LACTATE
     Route: 061
  9. POTASSIUM [Concomitant]
     Active Substance: POTASSIUM
     Dates: start: 2000
  10. TORSEMIDE. [Concomitant]
     Active Substance: TORSEMIDE
     Indication: BLOOD PRESSURE ABNORMAL
     Route: 048
     Dates: start: 2008
  11. VALIUM [Concomitant]
     Active Substance: DIAZEPAM
     Indication: SUICIDAL IDEATION
     Route: 048
     Dates: start: 2016
  12. FENTANYL. [Concomitant]
     Active Substance: FENTANYL
     Indication: PAIN
     Dates: start: 2016
  13. CELECOXIB. [Concomitant]
     Active Substance: CELECOXIB
     Route: 048
     Dates: start: 2016
  14. MAGNESIUM [Concomitant]
     Active Substance: MAGNESIUM
     Dates: start: 2012
  15. SEROQUEL [Suspect]
     Active Substance: QUETIAPINE FUMARATE
     Indication: SUICIDAL IDEATION
     Route: 048
     Dates: start: 2006
  16. XANAX XR [Suspect]
     Active Substance: ALPRAZOLAM
     Indication: DEPRESSION
     Route: 048
     Dates: start: 2006
  17. XANAX XR [Suspect]
     Active Substance: ALPRAZOLAM
     Indication: ANXIETY
     Route: 048
     Dates: start: 201409
  18. XANAX XR [Suspect]
     Active Substance: ALPRAZOLAM
     Indication: SUICIDAL IDEATION
     Route: 048
     Dates: start: 201409
  19. LIPITOR [Concomitant]
     Active Substance: ATORVASTATIN CALCIUM
     Route: 048
     Dates: start: 2011
  20. VALIUM [Concomitant]
     Active Substance: DIAZEPAM
     Indication: DEPRESSION
     Route: 048
     Dates: start: 2016
  21. VITAMIN B6 [Concomitant]
     Active Substance: PYRIDOXINE HYDROCHLORIDE
     Dates: start: 2000
  22. VITAMIN B12 [Concomitant]
     Active Substance: CYANOCOBALAMIN
     Dates: start: 2012
  23. SEROQUEL [Suspect]
     Active Substance: QUETIAPINE FUMARATE
     Indication: ANXIETY
     Route: 048
     Dates: start: 2006
  24. TORSEMIDE. [Concomitant]
     Active Substance: TORSEMIDE
     Indication: BLOOD PRESSURE ABNORMAL
     Route: 048
     Dates: start: 201409
  25. CIPROFLOXACIN. [Concomitant]
     Active Substance: CIPROFLOXACIN
     Route: 047
  26. IBUPROFEN. [Concomitant]
     Active Substance: IBUPROFEN
     Dates: start: 2000
  27. SEROQUEL [Suspect]
     Active Substance: QUETIAPINE FUMARATE
     Indication: DEPRESSION
     Route: 048
     Dates: start: 2006
  28. XANAX XR [Suspect]
     Active Substance: ALPRAZOLAM
     Indication: ANXIETY
     Route: 048
     Dates: start: 2006
  29. OCTAGAM IMMUNE GLOBULIN (HUMAN) [Concomitant]
     Active Substance: HUMAN IMMUNOGLOBULIN G
     Route: 042
  30. TORSEMIDE. [Concomitant]
     Active Substance: TORSEMIDE
     Indication: OEDEMA
     Route: 048
     Dates: start: 201409
  31. TORSEMIDE. [Concomitant]
     Active Substance: TORSEMIDE
     Indication: OEDEMA
     Route: 048
     Dates: start: 2008

REACTIONS (6)
  - Tremor [Recovered/Resolved]
  - Oedema [Recovering/Resolving]
  - Dysphagia [Not Recovered/Not Resolved]
  - Crying [Not Recovered/Not Resolved]
  - Vomiting [Recovered/Resolved]
  - Suicidal ideation [Not Recovered/Not Resolved]

NARRATIVE: CASE EVENT DATE: 2006
